FAERS Safety Report 4934927-9 (Version None)
Quarter: 2006Q1

REPORT INFORMATION
  Report Type: 
  Country: None (occurrence: None)
  Receive Date: 20060306
  Receipt Date: 20060306
  Transmission Date: 20060701
  Serious: Yes (Disabling)
  Sender: FDA-Public Use
  Company Number: None

PATIENT
  Age: 37 Year
  Sex: Male
  Weight: 102 kg

DRUGS (1)
  1. ZOSYN [Suspect]
     Indication: POSTOPERATIVE CARE
     Dosage: 3.375 Q 6H IV
     Route: 042
     Dates: start: 20060207, end: 20060212

REACTIONS (2)
  - PRURITUS [None]
  - RASH [None]
